FAERS Safety Report 5695919-8 (Version None)
Quarter: 2008Q2

REPORT INFORMATION
  Report Type: 
  Country: None (occurrence: None)
  Receive Date: 20080407
  Receipt Date: 20080402
  Transmission Date: 20081010
  Serious: Yes (Other)
  Sender: FDA-Public Use
  Company Number: A0718913A

PATIENT
  Age: 48 Year
  Sex: Male

DRUGS (3)
  1. NICODERM CQ [Suspect]
     Indication: SMOKING CESSATION THERAPY
     Route: 062
     Dates: start: 20080301
  2. NICODERM CQ [Suspect]
     Indication: SMOKING CESSATION THERAPY
     Route: 062
     Dates: start: 20080401
  3. CHANTIX [Concomitant]

REACTIONS (8)
  - APPLICATION SITE ERYTHEMA [None]
  - BODY TEMPERATURE INCREASED [None]
  - EXPIRED DRUG ADMINISTERED [None]
  - HOT FLUSH [None]
  - HYPERHIDROSIS [None]
  - INTENTIONAL DRUG MISUSE [None]
  - MALAISE [None]
  - PNEUMONIA [None]
